FAERS Safety Report 7988858-0 (Version None)
Quarter: 2011Q4

REPORT INFORMATION
  Report Type: 
  Country: None (occurrence: None)
  Receive Date: 20111215
  Receipt Date: 20111215
  Transmission Date: 20120403
  Serious: No
  Sender: FDA-Public Use
  Company Number: None

PATIENT
  Age: 80 Year
  Sex: Female
  Weight: 65.7716 kg

DRUGS (1)
  1. INTERFERON [Suspect]
     Indication: URINARY TRACT INFECTION
     Dosage: 1 DOSE
     Dates: start: 20080801

REACTIONS (3)
  - FLUID INTAKE REDUCED [None]
  - APHAGIA [None]
  - VOMITING [None]
